FAERS Safety Report 9475101 (Version 1)
Quarter: 2013Q3

REPORT INFORMATION
  Report Type: Spontaneous
  Country: US (occurrence: US)
  Receive Date: 20130824
  Receipt Date: 20130824
  Transmission Date: 20140515
  Serious: No
  Sender: FDA-Public Use
  Company Number: US-B.I. PHARMACEUTICALS,INC./RIDGEFIELD-2013-BI-25833BP

PATIENT
  Age: 49 Year
  Sex: Male

DRUGS (4)
  1. COMBIVENT [Suspect]
     Indication: OCCUPATIONAL ASTHMA
     Dosage: DOSE PER APPLICATION: 20 MCG / 100 MCG; DAILY DOSE: 80 MCG / 400 MCG
     Route: 055
     Dates: start: 201308
  2. COMBIVENT [Suspect]
     Indication: OCCUPATIONAL ASTHMA
     Dosage: DOSE PER APPLICATION: 20 MCG / 100 MCG;
     Route: 055
     Dates: start: 201307, end: 201308
  3. CHEMOTHERAPY [Concomitant]
     Indication: COLON CANCER
     Dates: start: 201210
  4. STEROIDS [Concomitant]
     Indication: COLON CANCER
     Dates: start: 201210

REACTIONS (3)
  - Dyspnoea [Not Recovered/Not Resolved]
  - Off label use [Not Recovered/Not Resolved]
  - Drug prescribing error [Recovered/Resolved]
